FAERS Safety Report 8335637-0 (Version None)
Quarter: 2012Q2

REPORT INFORMATION
  Report Type: 
  Country: None (occurrence: None)
  Receive Date: 20120504
  Receipt Date: 20120424
  Transmission Date: 20120825
  Serious: Yes (Hospitalization)
  Sender: FDA-Public Use
  Company Number: US-BIOGENIDEC-2012BI008895

PATIENT
  Age: 64 Year
  Sex: Male

DRUGS (10)
  1. HYDROCORTISONE [Concomitant]
  2. FLUDROCORTISONE ACETATE [Concomitant]
  3. ASPIRIN [Concomitant]
  4. AGGRENOX [Concomitant]
  5. METOPROLOL TARTRATE [Concomitant]
     Indication: HEART RATE INCREASED
  6. LUNESTA [Concomitant]
  7. AVONEX [Suspect]
     Indication: MULTIPLE SCLEROSIS
     Route: 030
     Dates: start: 20110311, end: 20110311
  8. LEVOXYL [Concomitant]
  9. CRESTOR [Concomitant]
  10. ALTACE [Concomitant]

REACTIONS (7)
  - PYREXIA [None]
  - HYPERSENSITIVITY [None]
  - FEELING ABNORMAL [None]
  - MUSCULOSKELETAL STIFFNESS [None]
  - URINARY INCONTINENCE [None]
  - ASTHENIA [None]
  - FALL [None]
